FAERS Safety Report 24213542 (Version 2)
Quarter: 2024Q3

REPORT INFORMATION
  Report Type: Spontaneous
  Country: NL (occurrence: NL)
  Receive Date: 20240815
  Receipt Date: 20240830
  Transmission Date: 20241017
  Serious: Yes (Other)
  Sender: TEVA
  Company Number: None

PATIENT
  Age: 46 Year
  Sex: Female
  Weight: 90 kg

DRUGS (1)
  1. AJOVY [Suspect]
     Active Substance: FREMANEZUMAB-VFRM
     Indication: Migraine
     Dosage: FREMANEZUMAB 150MG/ML PEN 1.5ML, 1X PER MONTH 1 PIECE
     Route: 065
     Dates: start: 20240606

REACTIONS (8)
  - Throat tightness [Recovered/Resolved]
  - Vertigo [Recovered/Resolved]
  - Weight increased [Recovered/Resolved]
  - Alice in wonderland syndrome [Recovered/Resolved]
  - Palpitations [Recovered/Resolved]
  - Chest discomfort [Recovered/Resolved]
  - Fluid retention [Recovered/Resolved]
  - Dizziness [Recovered/Resolved]
